FAERS Safety Report 23983782 (Version 3)
Quarter: 2025Q2

REPORT INFORMATION
  Report Type: Report from Study
  Country: JP (occurrence: JP)
  Receive Date: 20240618
  Receipt Date: 20250403
  Transmission Date: 20250716
  Serious: Yes (Other)
  Sender: AMGEN
  Company Number: JP-KISSEI-TV20240449_P_1

PATIENT
  Age: 70 Year
  Sex: Male
  Weight: 62.5 kg

DRUGS (18)
  1. AVACOPAN [Suspect]
     Active Substance: AVACOPAN
     Indication: Microscopic polyangiitis
     Dosage: 30,MG,BID
     Route: 048
     Dates: start: 20230816
  2. PREDNISOLONE [Suspect]
     Active Substance: PREDNISOLONE
     Indication: Microscopic polyangiitis
     Dosage: 15,MG,QD
     Route: 048
  3. PREDNISOLONE [Suspect]
     Active Substance: PREDNISOLONE
     Dosage: 12.5,MG,QD
     Route: 048
     Dates: end: 20230830
  4. PREDNISOLONE [Suspect]
     Active Substance: PREDNISOLONE
     Dosage: 10,MG,QD
     Route: 048
     Dates: start: 20230831, end: 20230913
  5. PREDNISOLONE [Suspect]
     Active Substance: PREDNISOLONE
     Dosage: 9,MG,QD
     Route: 048
     Dates: start: 20230914, end: 20231011
  6. PREDNISOLONE [Suspect]
     Active Substance: PREDNISOLONE
     Dosage: 8,MG,QD
     Route: 048
     Dates: start: 20231012, end: 20240124
  7. PREDNISOLONE [Suspect]
     Active Substance: PREDNISOLONE
     Dosage: 15,MG,QD
     Route: 048
     Dates: start: 20240125, end: 20240207
  8. PREDNISOLONE [Suspect]
     Active Substance: PREDNISOLONE
     Dosage: 12.5,MG,QD
     Route: 048
     Dates: start: 20240208, end: 20240221
  9. PREDNISOLONE [Suspect]
     Active Substance: PREDNISOLONE
     Dosage: 11,MG,QD
     Route: 048
     Dates: start: 20240222, end: 20240403
  10. PREDNISOLONE [Suspect]
     Active Substance: PREDNISOLONE
     Dosage: 10,MG,QD
     Route: 048
     Dates: start: 20240404, end: 20240501
  11. PREDNISOLONE [Suspect]
     Active Substance: PREDNISOLONE
     Dosage: 9 ,MG,QD
     Route: 048
     Dates: start: 20240502, end: 20240703
  12. PREDNISOLONE [Suspect]
     Active Substance: PREDNISOLONE
     Dosage: 8 ,MG,QD
     Route: 048
     Dates: start: 20240704, end: 20240906
  13. PREDNISOLONE [Suspect]
     Active Substance: PREDNISOLONE
     Dosage: 7 ,MG,QD
     Route: 048
     Dates: start: 20240907, end: 20241001
  14. PREDNISOLONE [Suspect]
     Active Substance: PREDNISOLONE
     Dosage: 6 ,MG,QD
     Route: 048
     Dates: start: 20241002, end: 20241204
  15. PREDNISOLONE [Suspect]
     Active Substance: PREDNISOLONE
     Dosage: 5 ,MG,QD
     Route: 048
     Dates: start: 20241205
  16. SULFAMETHOXAZOLE\TRIMETHOPRIM [Concomitant]
     Active Substance: SULFAMETHOXAZOLE\TRIMETHOPRIM
     Indication: Antifungal prophylaxis
     Dosage: 1,MG,QW
     Route: 048
  17. ALFACALCIDOL [Concomitant]
     Active Substance: ALFACALCIDOL
     Indication: Osteoporosis
     Route: 048
  18. CARBOCYSTEINE [Concomitant]
     Active Substance: CARBOCYSTEINE
     Indication: Emphysema
     Route: 048
     Dates: start: 20240221, end: 20240703

REACTIONS (1)
  - Pneumonia bacterial [Recovering/Resolving]

NARRATIVE: CASE EVENT DATE: 20240124
